FAERS Safety Report 7242762-4 (Version None)
Quarter: 2011Q1

REPORT INFORMATION
  Report Type: 
  Country: None (occurrence: None)
  Receive Date: 20110125
  Receipt Date: 20110120
  Transmission Date: 20110831
  Serious: Yes (Other)
  Sender: FDA-Public Use
  Company Number: ES-PFIZER INC-2011007483

PATIENT
  Age: 38 Year
  Sex: Female

DRUGS (3)
  1. TOVIAZ [Suspect]
     Indication: HYPERTONIC BLADDER
     Dosage: 8 MG, UNK
     Dates: start: 20100701, end: 20101101
  2. GELOCATIL [Concomitant]
  3. TOVIAZ [Suspect]
     Dosage: 4 MG, UNK
     Dates: end: 20101201

REACTIONS (6)
  - HEADACHE [None]
  - MALAISE [None]
  - VOMITING [None]
  - SOMNOLENCE [None]
  - DIZZINESS [None]
  - ASTHENIA [None]
